FAERS Safety Report 9608436 (Version 6)
Quarter: 2017Q4

REPORT INFORMATION
  Report Type: Report from Study
  Country: JP (occurrence: JP)
  Receive Date: 20131009
  Receipt Date: 20171027
  Transmission Date: 20180321
  Serious: Yes (Hospitalization, Other)
  Sender: FDA-Public Use
  Company Number: PHHY2012JP079907

PATIENT
  Age: 21 Year
  Sex: Female
  Weight: 46 kg

DRUGS (10)
  1. AFINITOR [Suspect]
     Active Substance: EVEROLIMUS
     Dosage: 5 MG, QD
     Route: 048
     Dates: start: 20120124, end: 20120413
  2. AFINITOR [Suspect]
     Active Substance: EVEROLIMUS
     Dosage: 5 MG, QD
     Route: 048
     Dates: start: 20121123, end: 20121126
  3. AFINITOR [Suspect]
     Active Substance: EVEROLIMUS
     Indication: PANCREATIC NEUROENDOCRINE TUMOUR
     Dosage: 10 MG, QD
     Route: 048
     Dates: start: 20120106, end: 20120116
  4. BAYASPIRIN [Concomitant]
     Active Substance: ASPIRIN
     Indication: PROPHYLAXIS
     Dosage: 100 MG, UNK
     Route: 048
  5. AFINITOR [Suspect]
     Active Substance: EVEROLIMUS
     Dosage: 10 MG, QD
     Route: 048
     Dates: start: 20120414, end: 20120626
  6. SANDOSTATIN ^NOVARTIS^ [Concomitant]
     Indication: PANCREATIC NEUROENDOCRINE TUMOUR
     Dosage: UNK
     Route: 030
     Dates: start: 20100824, end: 20110519
  7. HACHIAZULE [Concomitant]
     Indication: PROPHYLAXIS
     Dosage: 6 G, UNK
     Route: 065
     Dates: start: 20120105, end: 20120209
  8. EBASTEL [Concomitant]
     Active Substance: EBASTINE
     Indication: PROPHYLAXIS
     Dosage: 10 MG, UNK
     Route: 048
  9. AFINITOR [Suspect]
     Active Substance: EVEROLIMUS
     Dosage: 10 MG, QD
     Route: 048
     Dates: start: 20121127, end: 20121212
  10. AFINITOR [Suspect]
     Active Substance: EVEROLIMUS
     Dosage: 5 MG, QD
     Route: 048
     Dates: start: 20121213, end: 20130214

REACTIONS (16)
  - Malignant neoplasm progression [Not Recovered/Not Resolved]
  - Neutrophil count decreased [Recovered/Resolved]
  - Rash [Recovered/Resolved]
  - Lymphocyte count decreased [Unknown]
  - Haemoglobin decreased [Unknown]
  - Gamma-glutamyltransferase increased [Unknown]
  - Stomatitis [Recovered/Resolved]
  - Rash generalised [Recovered/Resolved]
  - C-reactive protein increased [Unknown]
  - Metastases to liver [Recovered/Resolved]
  - Malignant neoplasm progression [Recovered/Resolved]
  - Aspartate aminotransferase increased [Unknown]
  - Alanine aminotransferase increased [Unknown]
  - Blood alkaline phosphatase increased [Unknown]
  - Dermatitis acneiform [Not Recovered/Not Resolved]
  - Stomatitis [Recovering/Resolving]

NARRATIVE: CASE EVENT DATE: 20120106
